FAERS Safety Report 4555884-3 (Version None)
Quarter: 2005Q1

REPORT INFORMATION
  Report Type: 
  Country: None (occurrence: None)
  Receive Date: 20050119
  Receipt Date: 20050109
  Transmission Date: 20050727
  Serious: Yes (Hospitalization)
  Sender: FDA-Public Use
  Company Number: US-ROCHE-392160

PATIENT
  Age: 35 Year
  Sex: Female

DRUGS (3)
  1. PEGASYS [Suspect]
     Indication: HEPATITIS C
     Dosage: ROUTE REPORTED AS: INJ.
     Route: 050
     Dates: start: 20040926
  2. COPEGUS [Suspect]
     Indication: HEPATITIS C
     Dosage: TAKEN EVERY DAY.
     Route: 048
     Dates: start: 20040926
  3. PHERGAN [Concomitant]
     Dosage: TAKEN EVERY DAY.

REACTIONS (13)
  - ANAEMIA [None]
  - BIPOLAR DISORDER [None]
  - CHILLS [None]
  - CRYING [None]
  - DEHYDRATION [None]
  - FEELING ABNORMAL [None]
  - GINGIVAL BLEEDING [None]
  - IMPAIRED HEALING [None]
  - MEMORY IMPAIRMENT [None]
  - ORAL INFECTION [None]
  - POST PROCEDURAL COMPLICATION [None]
  - PYREXIA [None]
  - VOMITING [None]
